FAERS Safety Report 9487381 (Version 4)
Quarter: 2013Q4

REPORT INFORMATION
  Report Type: Report from Study
  Country: US (occurrence: US)
  Receive Date: 20130829
  Receipt Date: 20131115
  Transmission Date: 20140711
  Serious: Yes (Other)
  Sender: FDA-Public Use
  Company Number: US-PURDUE-USA-2013-0105774

PATIENT
  Sex: Female

DRUGS (5)
  1. OXYCONTIN (NDA 22-272) [Suspect]
     Indication: FIBROMYALGIA
     Dosage: 60 MG, Q12H
     Route: 048
     Dates: start: 20120919
  2. OXYCONTIN (NDA 22-272) [Suspect]
     Indication: ARTHRALGIA
     Dosage: 60 MG, TID
     Route: 048
  3. OXYCONTIN (NDA 22-272) [Suspect]
     Indication: BACK PAIN
     Dosage: 80 MG, Q12H
     Route: 048
     Dates: start: 201305
  4. OXYCONTIN (NDA 22-272) [Suspect]
     Indication: INTERVERTEBRAL DISC DEGENERATION
     Dosage: 80 MG, Q12H
     Route: 048
     Dates: start: 20131023
  5. CYMBALTA [Concomitant]

REACTIONS (13)
  - Medical device implantation [Recovered/Resolved]
  - Pain [Not Recovered/Not Resolved]
  - Fall [Unknown]
  - Nerve injury [Unknown]
  - Joint swelling [Not Recovered/Not Resolved]
  - Drug tolerance [Not Recovered/Not Resolved]
  - Anxiety [Not Recovered/Not Resolved]
  - Depression [Not Recovered/Not Resolved]
  - Somnolence [Not Recovered/Not Resolved]
  - Muscle spasms [Not Recovered/Not Resolved]
  - Fatigue [Unknown]
  - Paraplegia [Not Recovered/Not Resolved]
  - Medical device complication [Not Recovered/Not Resolved]
